FAERS Safety Report 15995712 (Version 1)
Quarter: 2019Q1

REPORT INFORMATION
  Report Type: Spontaneous
  Country: GR (occurrence: GR)
  Receive Date: 20190222
  Receipt Date: 20190222
  Transmission Date: 20190418
  Serious: Yes (Hospitalization, Other)
  Sender: FDA-Public Use
  Company Number: IND-GR-009507513-1902GRC006284

PATIENT
  Age: 16 Year
  Sex: Female

DRUGS (1)
  1. ESMERON [Suspect]
     Active Substance: ROCURONIUM BROMIDE

REACTIONS (2)
  - Hypersensitivity [Recovered/Resolved]
  - Endotracheal intubation [Unknown]
